FAERS Safety Report 8594277-9 (Version None)
Quarter: 2012Q3

REPORT INFORMATION
  Report Type: 
  Country: None (occurrence: None)
  Receive Date: 20120815
  Receipt Date: 20090618
  Transmission Date: 20120928
  Serious: Yes (Hospitalization)
  Sender: FDA-Public Use
  Company Number: DE-009507513-2008SP025557

PATIENT

DRUGS (40)
  1. CYCLOPHOSPHAMIDE [Concomitant]
     Indication: ACUTE LYMPHOCYTIC LEUKAEMIA
     Dates: start: 20081031, end: 20081121
  2. CYTARABINE [Concomitant]
     Indication: LEUKAEMIA
     Dosage: 30 MG, QD
     Route: 037
     Dates: start: 20081219, end: 20081226
  3. BLOOD CELLS, RED [Concomitant]
     Indication: ANAEMIA
     Dosage: 0N 28-DEC-2008 AND ON 5-JAN-2009
     Dates: start: 20081126, end: 20081202
  4. SODIUM CHLORIDE [Concomitant]
     Indication: PROPHYLAXIS
     Dates: start: 20081031, end: 20081123
  5. SODIUM BICARBONATE [Concomitant]
     Indication: PH URINE INCREASED
     Dosage: CONCENTRATION OF 8.4%
     Dates: start: 20081118, end: 20081120
  6. AMPHOTERICIN B [Concomitant]
     Indication: ANTIFUNGAL PROPHYLAXIS
     Dosage: 2 ML, QID
     Route: 048
     Dates: start: 20081201, end: 20081202
  7. VINDESINE [Suspect]
     Indication: LEUKAEMIA
     Dosage: 2.3 MG, QD
     Route: 042
     Dates: start: 20081219, end: 20081219
  8. IFOSFAMIDE [Suspect]
     Indication: ACUTE LEUKAEMIA
     Dosage: 620 MG, BID
     Route: 042
     Dates: start: 20081220, end: 20081221
  9. FLUCONAZOLE [Concomitant]
     Indication: ANTIFUNGAL PROPHYLAXIS
     Dates: start: 20081118, end: 20081128
  10. PIPERACILLIN AND TAZOBACTAM [Concomitant]
     Indication: ANTIBIOTIC THERAPY
     Dosage: ANTIBIOTIC AGAINST BROVLAC CATHETAR INFECTION
     Dates: start: 20081123, end: 20081128
  11. VINCRISTINE SULFATE [Concomitant]
     Indication: ACUTE LYMPHOCYTIC LEUKAEMIA
     Dosage: FIRST DOSE ON 31-OCT-2008, SECOND DOSE ON 23-NOV-2008.
     Dates: start: 20081118, end: 20081123
  12. METHOTREXATE [Suspect]
     Indication: ACUTE LYMPHOCYTIC LEUKAEMIA
     Dosage: 3900 MG, QD
     Route: 042
     Dates: start: 20081219, end: 20081219
  13. GRANOCYTE [Concomitant]
     Indication: COLONY STIMULATING FACTOR THERAPY
     Dates: start: 20081128, end: 20081205
  14. MESNA [Concomitant]
     Indication: PROPHYLAXIS
     Dosage: FIRST CYCLE TAKEN ON 31-OCT-2008, SECOND CYCLE FROM 19-NOV-2008 TO 21-NOV-2008.
     Dates: start: 20081031, end: 20081121
  15. KYBERNIN [Concomitant]
     Indication: ANTITHROMBIN III
     Dosage: FIRST COURSE ON 26-NOV-2008, SECOND COURSE ON 28-NOV-2008.
     Dates: start: 20081126, end: 20081128
  16. LEUCOVORIN CALCIUM [Concomitant]
     Indication: PROPHYLAXIS
     Route: 042
     Dates: start: 20081221
  17. MESNA [Concomitant]
     Indication: PROPHYLAXIS URINARY TRACT INFECTION
     Dosage: UNK UNK, PRN
     Dates: start: 20081119, end: 20081222
  18. GRANISETRON [Concomitant]
     Indication: PROPHYLAXIS OF NAUSEA AND VOMITING
     Dosage: UNK UNK, PRN
     Dates: start: 20081118, end: 20081228
  19. PYRIDOXINE HYDROCHLORIDE [Concomitant]
     Indication: VITAMIN SUPPLEMENTATION
     Dates: start: 20081122, end: 20081125
  20. POSACONAZOLE [Suspect]
     Indication: PROPHYLAXIS
     Dosage: 120 MG, BID
     Route: 048
     Dates: start: 20081124, end: 20081205
  21. GRANISETRON HYDROCHLORIDE [Suspect]
     Indication: PROPHYLAXIS
     Dosage: 1 MG, UNK
     Route: 042
     Dates: start: 20081219, end: 20081225
  22. SODIUM BICARBONATE (+) SODIUM PHOSPHATE, MONOBASIC [Concomitant]
     Indication: CONSTIPATION PROPHYLAXIS
     Dates: start: 20081122, end: 20081122
  23. DAUNORUBICIN HCL [Concomitant]
     Indication: ACUTE LYMPHOCYTIC LEUKAEMIA
     Dates: start: 20081223, end: 20081223
  24. IFOSFAMIDE [Suspect]
     Dosage: 620 MG, QD
     Route: 042
     Dates: start: 20081222, end: 20081222
  25. COTRIM [Concomitant]
     Indication: ANTIFUNGAL PROPHYLAXIS
     Dates: start: 20081230
  26. GLUCOSE BRAUN [Concomitant]
     Indication: PROPHYLAXIS
     Dates: start: 20081031, end: 20081123
  27. POTASSIUM CHLORIDE [Concomitant]
     Indication: MINERAL SUPPLEMENTATION
     Dates: start: 20081031, end: 20081123
  28. ASPARAGINASE (AS DRUG) [Concomitant]
     Indication: ACUTE LYMPHOCYTIC LEUKAEMIA
     Dosage: FIRST DOSE ON 23-NOV-2008, SECOND DOSE ON 28-NOV-2008.
     Dates: start: 20081123, end: 20081128
  29. BENADON [Concomitant]
     Indication: VITAMIN SUPPLEMENTATION
     Dates: start: 20081122, end: 20081125
  30. DIMENHYDRINATE [Concomitant]
     Indication: PROPHYLAXIS OF NAUSEA AND VOMITING
     Dates: start: 20081118, end: 20081124
  31. DEXTROSE [Concomitant]
     Indication: PROPHYLAXIS AGAINST DEHYDRATION
     Dosage: FIRST INFUSION FROM 17-NOV-2008 TO 18-NOV-2008, SECOND INFUSION FROM 24-NOV-2008 TO 29-NOV-2008.
     Dates: start: 20081117, end: 20081129
  32. METHOTREXATE [Concomitant]
     Dosage: 19-NOV2008, 26-NOV-2008, 23-DEC-2008
     Route: 037
     Dates: start: 20081118
  33. SODIUM BICARBONATE [Concomitant]
     Indication: CONSTIPATION PROPHYLAXIS
     Dates: start: 20081122, end: 20081122
  34. LENOGRASTIM [Concomitant]
     Indication: COLONY STIMULATING FACTOR THERAPY
     Dates: start: 20081128, end: 20081205
  35. FOLIC ACID [Concomitant]
     Indication: TOXICITY TO VARIOUS AGENTS
     Dosage: 12 MG, PRN
     Route: 042
     Dates: start: 20081221, end: 20081225
  36. DEXAMETHASONE [Suspect]
     Indication: ACUTE LYMPHOCYTIC LEUKAEMIA
     Dosage: 5 MG, TID
     Route: 048
     Dates: start: 20081219, end: 20081223
  37. DIPYRIDAMOLE [Concomitant]
     Indication: THROMBOCYTOPENIA
     Dates: start: 20081202, end: 20081202
  38. LEUCOVORIN CALCIUM [Concomitant]
     Indication: TOXICITY TO VARIOUS AGENTS
     Dates: start: 20081119, end: 20081120
  39. ISOPTO-DEX [Concomitant]
     Indication: PROPHYLAXIS
     Dosage: UNK UNK, PRN
     Dates: start: 20081118, end: 20081223
  40. METICORTEN [Concomitant]
     Indication: ACUTE LYMPHOCYTIC LEUKAEMIA
     Dosage: 10 MG, QD
     Route: 037
     Dates: start: 20081126, end: 20081223

REACTIONS (3)
  - CHEMOTHERAPEUTIC DRUG LEVEL INCREASED [None]
  - TRANSAMINASES INCREASED [None]
  - PUNCTURE SITE INFECTION [None]
